FAERS Safety Report 8732008 (Version 2)
Quarter: 2012Q4

REPORT INFORMATION
  Report Type: 
  Country: US (occurrence: US)
  Receive Date: 20120820
  Receipt Date: 20121227
  Transmission Date: 20130627
  Serious: Yes (Death, Other)
  Sender: FDA-Public Use
  Company Number: US-CELGENEUS-163-21880-11101372

PATIENT
  Age: 50 None
  Sex: Female

DRUGS (1)
  1. REVLIMID [Suspect]
     Indication: NEUROENDOCRINE CARCINOMA
     Dosage: 20 Milligram
     Route: 048
     Dates: start: 20110602, end: 20110921

REACTIONS (2)
  - Neuroendocrine carcinoma [Fatal]
  - Thrombocytopenia [Not Recovered/Not Resolved]
